FAERS Safety Report 7815128-3 (Version None)
Quarter: 2011Q4

REPORT INFORMATION
  Report Type: 
  Country: None (occurrence: None)
  Receive Date: 20111014
  Receipt Date: 20111006
  Transmission Date: 20120403
  Serious: Yes (Hospitalization)
  Sender: FDA-Public Use
  Company Number: AU-UCBSA-042975

PATIENT
  Sex: Female

DRUGS (6)
  1. KEPPRA [Suspect]
     Indication: EPILEPSY
     Route: 048
     Dates: start: 20010101
  2. VALPROATE SODIUM [Suspect]
     Dosage: REDUCED
     Dates: end: 20110101
  3. VIMPAT [Suspect]
     Indication: EPILEPSY
     Route: 048
     Dates: start: 20110101, end: 20111003
  4. VIMPAT [Suspect]
     Route: 048
     Dates: start: 20111003
  5. VALPROATE SODIUM [Suspect]
     Indication: EPILEPSY
     Dosage: UNKNOWN DOSE
  6. VALPROATE SODIUM [Suspect]
     Dosage: INCRESED DOSE

REACTIONS (3)
  - CONVULSION [None]
  - HAEMOLYSIS [None]
  - TOXIC ENCEPHALOPATHY [None]
